FAERS Safety Report 6568481-5 (Version None)
Quarter: 2010Q1

REPORT INFORMATION
  Report Type: 
  Country: None (occurrence: None)
  Receive Date: 20100203
  Receipt Date: 20100126
  Transmission Date: 20100710
  Serious: Yes (Other)
  Sender: FDA-Public Use
  Company Number: B0614249A

PATIENT
  Age: 75 Year
  Sex: Male
  Weight: 65 kg

DRUGS (6)
  1. VALTREX [Suspect]
     Indication: HERPES ZOSTER
     Dosage: 1000MG THREE TIMES PER DAY
     Route: 048
     Dates: start: 20091124, end: 20091208
  2. LOXONIN [Suspect]
     Indication: DRUG USE FOR UNKNOWN INDICATION
     Route: 048
  3. ARASENA-A [Suspect]
     Indication: DRUG USE FOR UNKNOWN INDICATION
     Route: 062
  4. METHYCOBAL [Concomitant]
     Route: 065
  5. MYONAL [Concomitant]
     Route: 048
  6. MUCOSTA [Concomitant]
     Route: 048

REACTIONS (4)
  - BLOOD CREATININE INCREASED [None]
  - MALAISE [None]
  - RENAL FAILURE ACUTE [None]
  - RENAL IMPAIRMENT [None]
